FAERS Safety Report 6406901-7 (Version None)
Quarter: 2009Q4

REPORT INFORMATION
  Report Type: 
  Country: None (occurrence: None)
  Receive Date: 20091020
  Receipt Date: 20091013
  Transmission Date: 20100525
  Serious: Yes (Disabling)
  Sender: FDA-Public Use
  Company Number: US-ASTRAZENECA-2009SE20182

PATIENT
  Age: 88 Year
  Sex: Female

DRUGS (2)
  1. CRESTOR [Suspect]
     Route: 048
     Dates: start: 20090501, end: 20090723
  2. ZETIA [Concomitant]

REACTIONS (1)
  - LOSS OF CONTROL OF LEGS [None]
